FAERS Safety Report 17111474 (Version 6)
Quarter: 2020Q2

REPORT INFORMATION
  Report Type: Report from Study
  Country: None (occurrence: US)
  Receive Date: 20191204
  Receipt Date: 20200608
  Transmission Date: 20200713
  Serious: Yes (Other)
  Sender: FDA-Public Use
  Company Number: US-ABBVIE-19K-163-3178848-00

PATIENT
  Age: 63 Year
  Sex: Female

DRUGS (3)
  1. ATORVASTATIN [Concomitant]
     Active Substance: ATORVASTATIN
     Indication: PRODUCT USED FOR UNKNOWN INDICATION
     Dosage: DOSED DOUBLED
  2. HUMIRA [Suspect]
     Active Substance: ADALIMUMAB
     Indication: RHEUMATOID ARTHRITIS
     Route: 058
     Dates: start: 20190527, end: 201911
  3. HUMIRA [Suspect]
     Active Substance: ADALIMUMAB
     Route: 058
     Dates: start: 201905

REACTIONS (20)
  - Dry eye [Not Recovered/Not Resolved]
  - Back pain [Recovering/Resolving]
  - Impaired work ability [Not Recovered/Not Resolved]
  - Gait disturbance [Not Recovered/Not Resolved]
  - Eye discharge [Unknown]
  - Injury associated with device [Unknown]
  - Procedural pain [Unknown]
  - Rheumatoid arthritis [Not Recovered/Not Resolved]
  - Device issue [Unknown]
  - Foot deformity [Unknown]
  - Glycosylated haemoglobin increased [Unknown]
  - Oropharyngeal pain [Unknown]
  - Cough [Unknown]
  - Mobility decreased [Unknown]
  - Post procedural swelling [Not Recovered/Not Resolved]
  - Ankle fracture [Unknown]
  - Foot fracture [Unknown]
  - Weight increased [Not Recovered/Not Resolved]
  - Abnormal sensation in eye [Unknown]
  - Fatigue [Unknown]

NARRATIVE: CASE EVENT DATE: 201911
